FAERS Safety Report 5724917-0 (Version None)
Quarter: 2008Q2

REPORT INFORMATION
  Report Type: 
  Country: None (occurrence: None)
  Receive Date: 20080430
  Receipt Date: 20080430
  Transmission Date: 20081010
  Serious: Yes (Disabling)
  Sender: FDA-Public Use
  Company Number: None

PATIENT
  Age: 80 Year
  Sex: Female
  Weight: 43.0917 kg

DRUGS (1)
  1. AMIODARONE HCL [Suspect]
     Indication: ATRIAL FIBRILLATION
     Dosage: 300MG X1 IV BOLUS 0.83MG/KG/HR CONTINUOUS IV DRIP
     Route: 040
     Dates: start: 20080417, end: 20080418

REACTIONS (2)
  - INFUSION RELATED REACTION [None]
  - PHLEBITIS [None]
